FAERS Safety Report 4267211-X (Version None)
Quarter: 2004Q1

REPORT INFORMATION
  Report Type: 
  Country: None (occurrence: None)
  Receive Date: 20040107
  Receipt Date: 20031215
  Transmission Date: 20041129
  Serious: Yes (Disabling)
  Sender: FDA-Public Use
  Company Number: A06200300075

PATIENT
  Age: 52 Year
  Sex: Male

DRUGS (1)
  1. XATRAL - ALFUZOSIN - TABLET - UNIT DOSE: UNKNOWN [Suspect]
     Indication: BLADDER STENOSIS
     Dosage: 10 MG
     Route: 048
     Dates: start: 20030903, end: 20030910

REACTIONS (4)
  - CONFUSIONAL STATE [None]
  - HYPOAESTHESIA [None]
  - PAIN IN EXTREMITY [None]
  - PARAESTHESIA [None]
